FAERS Safety Report 4851229-X (Version None)
Quarter: 2005Q4

REPORT INFORMATION
  Report Type: 
  Country: None (occurrence: None)
  Receive Date: 20051212
  Receipt Date: 20051201
  Transmission Date: 20060501
  Serious: Yes (Hospitalization)
  Sender: FDA-Public Use
  Company Number: US-JNJFOC-20051200954

PATIENT
  Sex: Female

DRUGS (21)
  1. INFLIXIMAB [Suspect]
     Indication: RHEUMATOID ARTHRITIS
     Route: 042
  2. ACCUPRIL [Concomitant]
  3. CALCIUM GLUCONATE [Concomitant]
  4. CELEXA [Concomitant]
  5. DETROL [Concomitant]
  6. DYAZIDE [Concomitant]
  7. DYAZIDE [Concomitant]
  8. FOLIC ACID [Concomitant]
  9. PLAQUENIL [Concomitant]
  10. PREDNISONE [Concomitant]
  11. PREMARIN [Concomitant]
  12. SYNTHROID [Concomitant]
  13. TRAZODONE HCL [Concomitant]
  14. VITAMIN B COMPLEX CAP [Concomitant]
  15. VITAMIN B COMPLEX CAP [Concomitant]
  16. VITAMIN B COMPLEX CAP [Concomitant]
  17. VITAMIN B COMPLEX CAP [Concomitant]
  18. VITAMIN B COMPLEX CAP [Concomitant]
  19. ASCORBIC ACID [Concomitant]
  20. TYLENOL [Concomitant]
  21. TYLENOL (CAPLET) [Concomitant]
     Dosage: AT BEDTIME

REACTIONS (1)
  - TENOSYNOVITIS [None]
